FAERS Safety Report 19451957 (Version 1)
Quarter: 2021Q2

REPORT INFORMATION
  Report Type: Spontaneous
  Country: US (occurrence: US)
  Receive Date: 20210623
  Receipt Date: 20210623
  Transmission Date: 20210717
  Serious: No
  Sender: FDA-Public Use
  Company Number: US-JNJFOC-20210635732

PATIENT
  Sex: Female

DRUGS (1)
  1. XARELTO [Suspect]
     Active Substance: RIVAROXABAN
     Indication: THROMBOSIS
     Route: 048
     Dates: start: 202105

REACTIONS (6)
  - Incorrect dose administered [Unknown]
  - Dizziness [Unknown]
  - Product label issue [Unknown]
  - Muscle spasms [Unknown]
  - Taste disorder [Unknown]
  - Headache [Unknown]
